FAERS Safety Report 5357417-0 (Version None)
Quarter: 2007Q2

REPORT INFORMATION
  Report Type: 
  Country: None (occurrence: None)
  Receive Date: 20070530
  Receipt Date: 20061106
  Transmission Date: 20071010
  Serious: Yes (Other)
  Sender: FDA-Public Use
  Company Number: US200607003722

PATIENT
  Age: 53 Year
  Sex: Female
  Weight: 98 kg

DRUGS (5)
  1. ZYPREXA [Suspect]
     Indication: DEPRESSION
  2. BUPROPION HCL [Concomitant]
  3. FLUOXETINE [Concomitant]
  4. MIRTAZAPINE [Concomitant]
  5. PAROXETINE [Concomitant]

REACTIONS (6)
  - CEREBROVASCULAR ACCIDENT [None]
  - DIABETES MELLITUS [None]
  - HYPERGLYCAEMIA [None]
  - METABOLIC DISORDER [None]
  - NEUROPATHY [None]
  - POLYURIA [None]
